FAERS Safety Report 14748604 (Version 1)
Quarter: 2018Q2

REPORT INFORMATION
  Report Type: Spontaneous
  Country: US (occurrence: US)
  Receive Date: 20180411
  Receipt Date: 20180411
  Transmission Date: 20180711
  Serious: No
  Sender: FDA-Public Use
  Company Number: US-AMGEN-USASP2017167548

PATIENT
  Age: 83 Year
  Sex: Female

DRUGS (17)
  1. ALIGN [Concomitant]
     Active Substance: BIFIDOBACTERIUM LONGUM SUBSP. INFANTIS
  2. NEURONTIN [Concomitant]
     Active Substance: GABAPENTIN
  3. PROLIA [Suspect]
     Active Substance: DENOSUMAB
     Indication: OSTEOPOROSIS POSTMENOPAUSAL
     Dosage: UNK
     Route: 065
  4. COLCRYS [Concomitant]
     Active Substance: COLCHICINE
  5. ASPIRIN. [Concomitant]
     Active Substance: ASPIRIN
     Dosage: 81 MG, UNK
  6. CITRUCEL [Concomitant]
     Active Substance: METHYLCELLULOSE (4000 MPA.S)
  7. URSO FORTE [Concomitant]
     Active Substance: URSODIOL
  8. NITROLINGUAL [Concomitant]
     Active Substance: NITROGLYCERIN
     Dosage: UNK, AS NECESSARY
  9. LEVAQUIN [Concomitant]
     Active Substance: LEVOFLOXACIN
  10. CRESTOR [Concomitant]
     Active Substance: ROSUVASTATIN CALCIUM
  11. BACLOFEN. [Concomitant]
     Active Substance: BACLOFEN
  12. SYNTHROID [Concomitant]
     Active Substance: LEVOTHYROXINE SODIUM
  13. PLAVIX [Concomitant]
     Active Substance: CLOPIDOGREL BISULFATE
  14. PREMARIN [Concomitant]
     Active Substance: ESTROGENS, CONJUGATED
  15. NORVASC [Concomitant]
     Active Substance: AMLODIPINE BESYLATE
  16. COREG [Concomitant]
     Active Substance: CARVEDILOL
  17. PROTONIX [Concomitant]
     Active Substance: PANTOPRAZOLE SODIUM

REACTIONS (5)
  - Cough [Not Recovered/Not Resolved]
  - Hypotension [Unknown]
  - Rhinorrhoea [Unknown]
  - Sneezing [Unknown]
  - Dizziness [Unknown]

NARRATIVE: CASE EVENT DATE: 201710
